FAERS Safety Report 9095292 (Version 2)
Quarter: 2013Q1

REPORT INFORMATION
  Report Type: Spontaneous
  Country: GB (occurrence: None)
  Receive Date: 20130122
  Receipt Date: 20130128
  Transmission Date: 20140127
  Serious: Yes (Hospitalization)
  Sender: FDA-Public Use
  Company Number: DSA_62000_2013

PATIENT
  Age: 72 Year
  Sex: Male

DRUGS (7)
  1. 5-FU /00098801/ (5-FU-FLUORORACIL) (NOT SPECIFIED) [Suspect]
     Indication: COLORECTAL CANCER METASTATIC
     Dosage: 1X/2 WEEKS
     Route: 040
     Dates: start: 20120925, end: 20120925
  2. AFLIBERCEPT (AFLIBERCEPT) SOLUTION FOR INJECTION [Suspect]
     Indication: COLORECTAL CANCER METASTATIC
     Dosage: 1X/2 WEEKS
     Route: 042
     Dates: start: 20120925, end: 20120925
  3. IRINOTECAN [Suspect]
     Indication: COLORECTAL CANCER METASTATIC
     Dosage: 1X/2 WEEKS
     Route: 042
     Dates: start: 20120925, end: 20120925
  4. LEUCOVORIN [Suspect]
     Indication: COLORECTAL CANCER METASTATIC
     Dosage: 1X/2 WEEKS
     Route: 042
     Dates: start: 20120925, end: 20120925
  5. CALCIUM CHANNEL BLOCKERS [Concomitant]
  6. ANTIFUNGALS FOR DERMATOLOGICAL USE [Concomitant]
  7. ANGIOTENSIN I I ANTAGONISTS, PLAIN [Concomitant]

REACTIONS (5)
  - Diarrhoea [None]
  - Blood urea increased [None]
  - Blood creatinine increased [None]
  - Blood potassium decreased [None]
  - Faeces discoloured [None]
